FAERS Safety Report 14017906 (Version 1)
Quarter: 2017Q3

REPORT INFORMATION
  Report Type: Spontaneous
  Country: GB (occurrence: GB)
  Receive Date: 20170928
  Receipt Date: 20170928
  Transmission Date: 20171128
  Serious: Yes (Other)
  Sender: FDA-Public Use
  Company Number: GB-ASTRAZENECA-2017SE98115

PATIENT
  Age: 22 Year
  Sex: Male
  Weight: 69.8 kg

DRUGS (1)
  1. OMEPRAZOL [Suspect]
     Active Substance: OMEPRAZOLE
     Indication: GASTROOESOPHAGEAL REFLUX DISEASE
     Dosage: 20MG
     Route: 048
     Dates: start: 20170911

REACTIONS (2)
  - Tension headache [Unknown]
  - Anxiety [Unknown]

NARRATIVE: CASE EVENT DATE: 20170912
